FAERS Safety Report 13087711 (Version 1)
Quarter: 2017Q1

REPORT INFORMATION
  Report Type: Spontaneous
  Country: FR (occurrence: FR)
  Receive Date: 20170105
  Receipt Date: 20170105
  Transmission Date: 20170428
  Serious: Yes (Hospitalization)
  Sender: FDA-Public Use
  Company Number: FR-009507513-1612FRA015273

PATIENT
  Sex: Male

DRUGS (14)
  1. CUBICIN [Suspect]
     Active Substance: DAPTOMYCIN
     Dosage: 500 MG, QD
     Route: 042
     Dates: start: 20161021, end: 20161103
  2. PIPERACILLIN AND TAZOBACTAM [Concomitant]
     Active Substance: PIPERACILLIN SODIUM\TAZOBACTAM SODIUM
     Indication: ARTHRITIS INFECTIVE
     Dosage: STRENGTH: 4 G /500 MG
     Route: 042
     Dates: end: 20161103
  3. LOVENOX [Concomitant]
     Active Substance: ENOXAPARIN SODIUM
     Dosage: STRENGTH: 4000IU ANTI-XA/0.4 ML, 1000 IU, DAILY
     Dates: start: 20161022, end: 20161109
  4. CUBICIN [Suspect]
     Active Substance: DAPTOMYCIN
     Dosage: 350 MG, QD
     Dates: start: 20161108, end: 20161111
  5. COLTRAMYL [Concomitant]
     Active Substance: THIOCOLCHICOSIDE
     Dosage: 4 MG, TID
     Route: 048
     Dates: start: 20161031, end: 20161105
  6. PANTOPRAZOLE [Concomitant]
     Active Substance: PANTOPRAZOLE SODIUM
     Dosage: 20 MG, QD
     Route: 048
     Dates: start: 20161027
  7. IMOVANE [Concomitant]
     Active Substance: ZOPICLONE
     Dosage: 7.5 MG, QD
     Route: 048
     Dates: start: 20161027
  8. DOLIPRANE [Concomitant]
     Active Substance: ACETAMINOPHEN
     Dosage: UNK, PRN
     Route: 048
     Dates: start: 20161022
  9. AERIUS [Concomitant]
     Active Substance: DESLORATADINE
     Dosage: 5 MG, QD
     Route: 048
     Dates: start: 20161030
  10. GAVISCON (ALUMINUM HYDROXIDE (+) MAGNESIUM CARBONATE (+) SODIUM ALGINA [Concomitant]
     Dosage: UNK
     Route: 048
     Dates: start: 20161101
  11. TRIFLUCAN [Concomitant]
     Active Substance: FLUCONAZOLE
     Dosage: STRENGTH: 200 MG/5 ML
     Route: 042
     Dates: start: 20161029, end: 20161103
  12. CANCIDAS [Concomitant]
     Active Substance: CASPOFUNGIN ACETATE
     Indication: ARTHRITIS INFECTIVE
     Dosage: 50 MG, QD
     Route: 042
     Dates: start: 20161026, end: 20161029
  13. CIFLOX (CIPROFLOXACIN HYDROCHLORIDE) [Concomitant]
     Active Substance: CIPROFLOXACIN HYDROCHLORIDE
     Indication: ARTHRITIS INFECTIVE
     Dosage: 200 MG, BID
     Route: 048
     Dates: start: 20161008, end: 20161103
  14. NEFOPAM [Concomitant]
     Active Substance: NEFOPAM
     Dosage: STRENGTH: 20 MG/2 ML
     Route: 042
     Dates: start: 20161022

REACTIONS (1)
  - Agranulocytosis [Recovered/Resolved]
